FAERS Safety Report 10046018 (Version 2)
Quarter: 2014Q1

REPORT INFORMATION
  Report Type: Spontaneous
  Country: US (occurrence: US)
  Receive Date: 20140330
  Receipt Date: 20140330
  Transmission Date: 20141002
  Serious: No
  Sender: FDA-Public Use
  Company Number: US-009507513-1403USA009881

PATIENT
  Age: 84 Year
  Sex: Male
  Weight: 76.64 kg

DRUGS (25)
  1. TICE BCG LIVE [Suspect]
     Indication: BLADDER CANCER
     Dosage: UNK
     Route: 043
     Dates: start: 20120417
  2. TICE BCG LIVE [Suspect]
     Dosage: UNK
     Route: 043
     Dates: start: 20120424
  3. TICE BCG LIVE [Suspect]
     Dosage: UNK
     Route: 043
     Dates: start: 20120430
  4. TICE BCG LIVE [Suspect]
     Dosage: UNK
     Route: 043
     Dates: start: 20120507
  5. TICE BCG LIVE [Suspect]
     Dosage: UNK
     Route: 043
     Dates: start: 20120515
  6. TICE BCG LIVE [Suspect]
     Dosage: UNK
     Route: 043
     Dates: start: 20120521
  7. TICE BCG LIVE [Suspect]
     Dosage: UNK
     Route: 043
     Dates: start: 20121227
  8. TICE BCG LIVE [Suspect]
     Dosage: UNK
     Route: 043
     Dates: start: 20130103
  9. TICE BCG LIVE [Suspect]
     Dosage: UNK
     Route: 043
     Dates: start: 20131014
  10. TICE BCG LIVE [Suspect]
     Dosage: UNK
     Route: 043
  11. METOPROLOL TARTRATE [Concomitant]
     Dosage: 1/2 TAB, BID
     Route: 048
  12. AMBIEN [Concomitant]
     Indication: SLEEP DISORDER
     Dosage: 1 TAB AT BEDTIME AS NEEDED
     Route: 048
  13. SONATA [Concomitant]
     Dosage: 1^2 PO Q HS
     Route: 048
  14. XANAX [Concomitant]
     Dosage: 1 PO Q HS
  15. VIAGRA [Concomitant]
     Dosage: TAKE ONE DAILY PRN
     Route: 048
  16. NEXIUM [Concomitant]
     Dosage: 1 CAP DAILY
     Route: 048
  17. NITROGLYCERIN [Concomitant]
     Indication: CHEST PAIN
     Dosage: 1 DF, PRN
  18. PLAVIX [Concomitant]
     Dosage: 1 TABLET DAILY
     Route: 048
  19. CELLCEPT [Concomitant]
     Dosage: 1 DF, BID
     Route: 048
  20. SIMVASTATIN [Concomitant]
     Dosage: 1 DF, HS
     Route: 048
  21. ISOSORBIDE DINITRATE [Concomitant]
     Dosage: TAKE ONE DAILY
     Route: 048
  22. ASPIRIN [Concomitant]
     Dosage: 1 TABLET DAILY
     Route: 048
  23. FERROUS SULFATE [Concomitant]
     Dosage: 1 TABLET DAILY
     Route: 048
  24. TEMAZEPAM [Concomitant]
     Indication: INSOMNIA
     Dosage: 1 QHS PRN
     Route: 048
  25. CIPRO [Suspect]

REACTIONS (8)
  - Haematuria [Unknown]
  - Influenza like illness [Recovering/Resolving]
  - Dysuria [Recovering/Resolving]
  - Pollakiuria [Recovering/Resolving]
  - Urticaria [Unknown]
  - Rash [Unknown]
  - Pyrexia [Unknown]
  - Chills [Unknown]
